FAERS Safety Report 4337733-1 (Version None)
Quarter: 2004Q2

REPORT INFORMATION
  Report Type: 
  Country: None (occurrence: None)
  Receive Date: 20040412
  Receipt Date: 20040330
  Transmission Date: 20050107
  Serious: Yes (Hospitalization)
  Sender: FDA-Public Use
  Company Number: WAES 0402USA01519

PATIENT
  Age: 67 Year
  Sex: Female

DRUGS (7)
  1. COZAAR [Suspect]
     Indication: HYPERTENSION
     Dosage: SEE IMAGE
     Route: 048
     Dates: start: 20011112, end: 20020206
  2. COZAAR [Suspect]
     Indication: HYPERTENSION
     Dosage: SEE IMAGE
     Route: 048
     Dates: start: 20020218
  3. ATORVASTATIN CALCIUM [Concomitant]
  4. CARVEDILOL [Concomitant]
  5. DOXAZOSIN MESYLATE [Concomitant]
  6. KUDZU [Concomitant]
  7. CILNIDIPINE [Suspect]
     Indication: HYPERTENSION
     Dosage: 10 MG / DAILY
     Route: 048
     Dates: start: 20020903, end: 20020917

REACTIONS (8)
  - ANGINA UNSTABLE [None]
  - BACK PAIN [None]
  - BLOOD LACTATE DEHYDROGENASE INCREASED [None]
  - HEADACHE [None]
  - HYPERTROPHIC CARDIOMYOPATHY [None]
  - MALAISE [None]
  - PALPITATIONS [None]
  - VENTRICULAR WALL THICKENING [None]
